FAERS Safety Report 20457407 (Version 1)
Quarter: 2022Q1

REPORT INFORMATION
  Report Type: Spontaneous
  Country: US (occurrence: US)
  Receive Date: 20220210
  Receipt Date: 20220210
  Transmission Date: 20220424
  Serious: Yes (Hospitalization)
  Sender: FDA-Public Use
  Company Number: US-009507513-2202USA001816

PATIENT
  Sex: Female

DRUGS (20)
  1. KEYTRUDA [Suspect]
     Active Substance: PEMBROLIZUMAB
     Indication: Product used for unknown indication
     Dosage: UNK, CYCLICAL
     Route: 042
  2. LENVATINIB MESYLATE [Suspect]
     Active Substance: LENVATINIB MESYLATE
     Indication: Endometrial cancer
     Dosage: 20 MILLIGRAM, 1 D
     Route: 048
     Dates: start: 202107, end: 20211028
  3. LENVATINIB MESYLATE [Suspect]
     Active Substance: LENVATINIB MESYLATE
     Dosage: 20 MILLIGRAM, 1 D
     Route: 048
     Dates: start: 2021
  4. VITAMIN B12 [Concomitant]
     Active Substance: CYANOCOBALAMIN
  5. VITAMIN D3 [Concomitant]
     Active Substance: CHOLECALCIFEROL
  6. VITAMIN C [Concomitant]
     Active Substance: ASCORBIC ACID
  7. ALBUTEROL [Concomitant]
     Active Substance: ALBUTEROL
  8. FLUTICASONE [Concomitant]
     Active Substance: FLUTICASONE
  9. NAPROXEN [Concomitant]
     Active Substance: NAPROXEN
  10. OMEPRAZOLE [Concomitant]
     Active Substance: OMEPRAZOLE
  11. ONDANSETRON [Concomitant]
     Active Substance: ONDANSETRON
  12. ROSUVASTATIN [Concomitant]
     Active Substance: ROSUVASTATIN
  13. OXYCODONE AND ACETAMINOPHEN [Concomitant]
     Active Substance: ACETAMINOPHEN\OXYCODONE HYDROCHLORIDE
  14. AMANTADINE [Concomitant]
     Active Substance: AMANTADINE
  15. TECFIDERA [Concomitant]
     Active Substance: DIMETHYL FUMARATE
  16. QUESTRAN [Concomitant]
     Active Substance: CHOLESTYRAMINE
  17. PREDNISONE [Concomitant]
     Active Substance: PREDNISONE
  18. ALPRAZOLAM [Concomitant]
     Active Substance: ALPRAZOLAM
  19. NYSTOP [Concomitant]
     Active Substance: NYSTATIN
  20. PROCHLORPERAZINE MALEATE [Concomitant]
     Active Substance: PROCHLORPERAZINE MALEATE

REACTIONS (12)
  - Gastrointestinal disorder [Unknown]
  - Dyspnoea [Unknown]
  - Decreased appetite [Unknown]
  - Insomnia [Unknown]
  - Diarrhoea [Unknown]
  - Weight decreased [Unknown]
  - Dehydration [Unknown]
  - Fatigue [Unknown]
  - Cough [Unknown]
  - Vomiting [Unknown]
  - Stomatitis [Unknown]
  - Urticaria [Unknown]

NARRATIVE: CASE EVENT DATE: 20210101
